FAERS Safety Report 15771638 (Version 1)
Quarter: 2018Q4

REPORT INFORMATION
  Report Type: Spontaneous
  Country: CN (occurrence: CN)
  Receive Date: 20181228
  Receipt Date: 20181228
  Transmission Date: 20190205
  Serious: Yes (Death, Other)
  Sender: FDA-Public Use
  Company Number: CN-ROCHE-2235707

PATIENT
  Age: 58 Year
  Sex: Female

DRUGS (37)
  1. BEVACIZUMAB. [Suspect]
     Active Substance: BEVACIZUMAB
     Dosage: 300MG, DAY 0; 200MG, DAY 1; Q2W, 7 CYCLES
     Route: 042
     Dates: start: 20151207, end: 20160408
  2. OXALIPLATIN. [Concomitant]
     Active Substance: OXALIPLATIN
     Indication: METASTASES TO BONE
  3. OXALIPLATIN. [Concomitant]
     Active Substance: OXALIPLATIN
     Indication: METASTASES TO LYMPH NODES
  4. 5-FU [Concomitant]
     Active Substance: FLUOROURACIL
     Route: 065
     Dates: start: 20160612, end: 20160726
  5. IRINOTECAN [Concomitant]
     Active Substance: IRINOTECAN
     Indication: METASTASES TO LIVER
     Route: 065
     Dates: start: 20160612, end: 20160726
  6. IRINOTECAN [Concomitant]
     Active Substance: IRINOTECAN
     Indication: METASTASES TO BONE
  7. MORPHINE [Concomitant]
     Active Substance: MORPHINE
     Indication: COLON CANCER
     Route: 065
     Dates: start: 20140530, end: 20161030
  8. BEVACIZUMAB. [Suspect]
     Active Substance: BEVACIZUMAB
     Indication: METASTASES TO LYMPH NODES
     Dosage: D1, Q3W, 4 CYCLES
     Route: 042
     Dates: start: 20151029, end: 20151119
  9. OXALIPLATIN. [Concomitant]
     Active Substance: OXALIPLATIN
     Indication: METASTASES TO LIVER
     Dosage: D1, Q3W, 9 CYCLES
     Route: 042
     Dates: start: 20150421, end: 20151008
  10. CALCIUM FOLINATE [Concomitant]
     Active Substance: LEUCOVORIN CALCIUM
     Indication: METASTASES TO LYMPH NODES
  11. IRINOTECAN [Concomitant]
     Active Substance: IRINOTECAN
     Indication: METASTASES TO LYMPH NODES
  12. CETUXIMAB. [Concomitant]
     Active Substance: CETUXIMAB
     Indication: METASTASES TO BONE
     Dosage: 2CYCLES
     Route: 042
     Dates: start: 20160612, end: 20160726
  13. BEVACIZUMAB. [Suspect]
     Active Substance: BEVACIZUMAB
     Indication: METASTASES TO LIVER
     Dosage: 300MG, DAY 0; 200MG, DAY 1; Q3W, 4 CYCLES
     Route: 042
     Dates: start: 20150113, end: 20150325
  14. IRINOTECAN [Concomitant]
     Active Substance: IRINOTECAN
     Indication: COLON CANCER
     Dosage: D1, Q2W, 7 CYCLES
     Route: 042
     Dates: start: 20151207, end: 20160408
  15. ZOLEDRONIC ACID [Concomitant]
     Active Substance: ZOLEDRONIC ACID
     Indication: METASTASES TO BONE
  16. MORPHINE [Concomitant]
     Active Substance: MORPHINE
     Indication: METASTASES TO BONE
  17. CETUXIMAB. [Concomitant]
     Active Substance: CETUXIMAB
     Indication: METASTASES TO LIVER
     Dosage: 1 CYCLES
     Route: 042
     Dates: start: 20160516
  18. 5-FU [Concomitant]
     Active Substance: FLUOROURACIL
     Indication: METASTASES TO LIVER
     Dosage: 46H, 12 CYCLES
     Route: 042
     Dates: start: 20140530, end: 20141226
  19. ZOLEDRONIC ACID [Concomitant]
     Active Substance: ZOLEDRONIC ACID
     Indication: METASTASES TO LIVER
  20. MORPHINE [Concomitant]
     Active Substance: MORPHINE
     Indication: METASTASES TO LIVER
  21. BEVACIZUMAB. [Suspect]
     Active Substance: BEVACIZUMAB
     Indication: METASTASES TO BONE
     Dosage: 300MG, DAY 0; 200MG, DAY 1; Q3W, 9 CYCLES
     Route: 042
     Dates: start: 20150421, end: 20151008
  22. CALCIUM FOLINATE [Concomitant]
     Active Substance: LEUCOVORIN CALCIUM
     Indication: COLON CANCER
     Dosage: D1,Q2W, 12 CYCLES
     Route: 042
     Dates: start: 20140530, end: 20141226
  23. CALCIUM FOLINATE [Concomitant]
     Active Substance: LEUCOVORIN CALCIUM
     Indication: METASTASES TO LIVER
     Dosage: D1, Q2W, 7 CYCLES
     Route: 042
     Dates: start: 20151207, end: 20160408
  24. CALCIUM FOLINATE [Concomitant]
     Active Substance: LEUCOVORIN CALCIUM
     Indication: METASTASES TO BONE
     Route: 065
     Dates: start: 20160612, end: 20160726
  25. ZOLEDRONIC ACID [Concomitant]
     Active Substance: ZOLEDRONIC ACID
     Indication: COLON CANCER
     Route: 042
     Dates: start: 20140530, end: 20161030
  26. MORPHINE [Concomitant]
     Active Substance: MORPHINE
     Indication: METASTASES TO LYMPH NODES
  27. 5-FU [Concomitant]
     Active Substance: FLUOROURACIL
     Indication: COLON CANCER
     Dosage: D1.2, Q2W, 12 CYCLES
     Route: 042
     Dates: start: 20140530, end: 20141226
  28. 5-FU [Concomitant]
     Active Substance: FLUOROURACIL
     Indication: METASTASES TO BONE
     Dosage: Q3W, 4 CYCLES
     Route: 065
     Dates: start: 20150113, end: 20150325
  29. 5-FU [Concomitant]
     Active Substance: FLUOROURACIL
     Dosage: 46H, 7 CYCLES
     Route: 042
     Dates: start: 20151207, end: 20160408
  30. CETUXIMAB. [Concomitant]
     Active Substance: CETUXIMAB
     Indication: COLON CANCER
     Dosage: 1 CYCLES
     Route: 042
     Dates: start: 20160516
  31. OXALIPLATIN. [Concomitant]
     Active Substance: OXALIPLATIN
     Indication: COLON CANCER
     Dosage: D1, Q2W, 12 CYCLES
     Route: 042
     Dates: start: 20140530, end: 20141226
  32. CETUXIMAB. [Concomitant]
     Active Substance: CETUXIMAB
     Indication: METASTASES TO LYMPH NODES
     Dosage: 1 CYCLES
     Route: 042
     Dates: start: 20160808
  33. BEVACIZUMAB. [Suspect]
     Active Substance: BEVACIZUMAB
     Indication: COLON CANCER
     Dosage: 300MG, DAY 0; 200MG, DAY 1; Q2W, 12 CYCLES
     Route: 042
     Dates: start: 20140530, end: 20141226
  34. 5-FU [Concomitant]
     Active Substance: FLUOROURACIL
     Indication: METASTASES TO LYMPH NODES
     Dosage: D1, Q3W, 4 CYCLES
     Route: 042
     Dates: start: 20151029, end: 20151119
  35. 5-FU [Concomitant]
     Active Substance: FLUOROURACIL
     Dosage: D1.2, Q2W, 7 CYCLES
     Route: 042
     Dates: start: 20151207, end: 20160408
  36. ZOLEDRONIC ACID [Concomitant]
     Active Substance: ZOLEDRONIC ACID
     Indication: METASTASES TO LYMPH NODES
  37. CETUXIMAB. [Concomitant]
     Active Substance: CETUXIMAB
     Dosage: 2 CYCLES
     Route: 065
     Dates: start: 20160912, end: 20160928

REACTIONS (4)
  - Jaundice [Unknown]
  - Bone marrow failure [Unknown]
  - Gastrointestinal disorder [Unknown]
  - Intestinal haemorrhage [Fatal]

NARRATIVE: CASE EVENT DATE: 20140724
